FAERS Safety Report 18086049 (Version 1)
Quarter: 2020Q3

REPORT INFORMATION
  Report Type: Spontaneous
  Country: US (occurrence: US)
  Receive Date: 20200728
  Receipt Date: 20200728
  Transmission Date: 20201103
  Serious: No
  Sender: FDA-Public Use
  Company Number: None

PATIENT
  Age: 77 Year
  Sex: Female
  Weight: 105.75 kg

DRUGS (20)
  1. ZOLPIDEM TARTRATE TAB 5 MG [Suspect]
     Active Substance: ZOLPIDEM TARTRATE
     Indication: SLEEP DISORDER
     Dosage: ?          QUANTITY:1 TABLET(S);?
     Route: 048
     Dates: start: 20200322
  2. ATORVASTATIN [Concomitant]
     Active Substance: ATORVASTATIN
  3. MULTIVITAMIN [Concomitant]
     Active Substance: VITAMINS
  4. IRBESARTAN. [Concomitant]
     Active Substance: IRBESARTAN
  5. ACIDOPHILUS [Concomitant]
     Active Substance: LACTOBACILLUS ACIDOPHILUS
  6. METAMUCIL [Concomitant]
     Active Substance: PLANTAGO SEED
  7. FLUOXETINE [Concomitant]
     Active Substance: FLUOXETINE HYDROCHLORIDE
  8. FLUTICASONE. [Concomitant]
     Active Substance: FLUTICASONE
  9. TURMERIC [Concomitant]
     Active Substance: HERBALS\TURMERIC
  10. IRON [Concomitant]
     Active Substance: IRON
  11. CALCIUM [Concomitant]
     Active Substance: CALCIUM
  12. MELOXICAM. [Concomitant]
     Active Substance: MELOXICAM
  13. HYDROCODONE [Concomitant]
     Active Substance: HYDROCODONE
  14. GUAIFENESIN. [Concomitant]
     Active Substance: GUAIFENESIN
  15. CETIRIZINE [Concomitant]
     Active Substance: CETIRIZINE HYDROCHLORIDE
  16. COLACE [Concomitant]
     Active Substance: DOCUSATE SODIUM
  17. MAGNESIUM MALATE. [Concomitant]
     Active Substance: MAGNESIUM MALATE
  18. D?MANNOSE [Concomitant]
  19. TIZANIDINE. [Concomitant]
     Active Substance: TIZANIDINE
  20. TIMOLOL. [Concomitant]
     Active Substance: TIMOLOL

REACTIONS (1)
  - Drug ineffective [None]

NARRATIVE: CASE EVENT DATE: 20200322
